FAERS Safety Report 14274602 (Version 1)
Quarter: 2017Q4

REPORT INFORMATION
  Report Type: Report from Study
  Country: NL (occurrence: NL)
  Receive Date: 20171212
  Receipt Date: 20171212
  Transmission Date: 20180321
  Serious: Yes (Death, Other)
  Sender: FDA-Public Use
  Company Number: NL-TOLMAR, INC.-2017NL013178

PATIENT
  Age: 78 Year
  Sex: Male

DRUGS (2)
  1. ELIGARD [Suspect]
     Active Substance: LEUPROLIDE ACETATE
     Indication: PROSTATE CANCER
     Dosage: 45 MG,1X PER 6 MONTHS
     Route: 058
     Dates: start: 20170323
  2. ELIGARD [Suspect]
     Active Substance: LEUPROLIDE ACETATE
     Dosage: 45 MG,1X PER 6 MONTHS
     Route: 058
     Dates: start: 20170926

REACTIONS (2)
  - Terminal state [Fatal]
  - Oesophageal neoplasm [Not Recovered/Not Resolved]

NARRATIVE: CASE EVENT DATE: 20170816
